FAERS Safety Report 5085831-X (Version None)
Quarter: 2006Q3

REPORT INFORMATION
  Report Type: 
  Country: None (occurrence: None)
  Receive Date: 20060817
  Receipt Date: 20060808
  Transmission Date: 20061208
  Serious: Yes (Other)
  Sender: FDA-Public Use
  Company Number: S06-USA-03172-01

PATIENT
  Age: 68 Year
  Sex: Male

DRUGS (2)
  1. TIAZAC [Suspect]
     Indication: HYPERTENSION
     Dosage: 360 MG QD PO
     Route: 048
     Dates: start: 20040101, end: 20060404
  2. IBUPROFEN [Concomitant]

REACTIONS (5)
  - CATARACT [None]
  - CYCLITIS [None]
  - INTRAOCULAR PRESSURE INCREASED [None]
  - IRITIS [None]
  - THERAPY NON-RESPONDER [None]
